FAERS Safety Report 5138045-9 (Version None)
Quarter: 2006Q4

REPORT INFORMATION
  Report Type: 
  Country: None (occurrence: None)
  Receive Date: 20061030
  Receipt Date: 20060406
  Transmission Date: 20070319
  Serious: No
  Sender: FDA-Public Use
  Company Number: US-GLAXOSMITHKLINE-A0600770A

PATIENT
  Sex: Male

DRUGS (7)
  1. ADVAIR HFA [Suspect]
     Indication: ASTHMA
     Route: 055
     Dates: start: 20040101
  2. FLONASE [Suspect]
     Indication: CHRONIC SINUSITIS
     Dosage: 20MG PER DAY
     Route: 045
     Dates: start: 20040101
  3. COMBIVENT [Concomitant]
  4. SINGULAIR [Concomitant]
  5. PREVACID [Concomitant]
  6. CLARITIN [Concomitant]
  7. FLUOXETINE [Concomitant]

REACTIONS (3)
  - COUGH [None]
  - DYSPNOEA EXERTIONAL [None]
  - WEIGHT INCREASED [None]
